FAERS Safety Report 16575329 (Version 2)
Quarter: 2020Q3

REPORT INFORMATION
  Report Type: Spontaneous
  Country: US (occurrence: US)
  Receive Date: 20190716
  Receipt Date: 20200814
  Transmission Date: 20201102
  Serious: Yes (Other)
  Sender: FDA-Public Use
  Company Number: US-AMRING PHARMACEUTICALS INC.-2019US006856

PATIENT
  Age: 27 Year
  Sex: Female
  Weight: 89 kg

DRUGS (4)
  1. SUCCINYLCHOLINE VIAL [Suspect]
     Active Substance: SUCCINYLCHOLINE
     Dosage: 60 MG
     Route: 042
     Dates: start: 20190702
  2. MORPHINE [Concomitant]
     Active Substance: MORPHINE
     Indication: PRODUCT USED FOR UNKNOWN INDICATION
     Dosage: SMALL DOSE
  3. SUCCINYLCHOLINE VIAL [Suspect]
     Active Substance: SUCCINYLCHOLINE
     Indication: ENDOTRACHEAL INTUBATION
     Dosage: 100 MG
     Route: 042
     Dates: start: 20190702
  4. PROPOFOL. [Concomitant]
     Active Substance: PROPOFOL
     Indication: PRODUCT USED FOR UNKNOWN INDICATION
     Dosage: UNK

REACTIONS (4)
  - Airway complication of anaesthesia [Unknown]
  - Maternal exposure during pregnancy [Unknown]
  - Drug ineffective [Unknown]
  - Product complaint [Unknown]

NARRATIVE: CASE EVENT DATE: 20190702
